FAERS Safety Report 8895526 (Version 1)
Quarter: 2012Q4

REPORT INFORMATION
  Report Type: 
  Country: US (occurrence: US)
  Receive Date: 20121107
  Receipt Date: 20121107
  Transmission Date: 20130627
  Serious: No
  Sender: FDA-Public Use
  Company Number: US-PFIZER INC-2012278548

PATIENT
  Age: 66 Year
  Sex: Female
  Weight: 59.86 kg

DRUGS (2)
  1. CHANTIX [Suspect]
     Indication: SMOKING CESSATION THERAPY
     Dosage: 0.5 mg,daily
     Route: 048
     Dates: start: 201210
  2. ATIVAN [Concomitant]
     Indication: ANXIETY
     Dosage: 0.5 mg, as needed

REACTIONS (2)
  - Nausea [Not Recovered/Not Resolved]
  - Abnormal dreams [Not Recovered/Not Resolved]
